FAERS Safety Report 4866110-X (Version None)
Quarter: 2005Q4

REPORT INFORMATION
  Report Type: 
  Country: None (occurrence: None)
  Receive Date: 20051221
  Receipt Date: 20051212
  Transmission Date: 20060501
  Serious: Yes (Other)
  Sender: FDA-Public Use
  Company Number: 2005153604

PATIENT
  Age: 56 Year
  Sex: Female
  Weight: 52 kg

DRUGS (5)
  1. LIPITOR [Suspect]
     Indication: ILL-DEFINED DISORDER
     Dosage: 20 MG (20 MG, 1 IN 1 D), ORAL
     Route: 048
     Dates: start: 20030101
  2. RAMIPRIL [Concomitant]
  3. PROMOCARD (ISOSORBIDE MONONITRATE) [Concomitant]
  4. LANOXIN [Concomitant]
  5. EUCARDIC (CARVEDILOL) [Concomitant]

REACTIONS (2)
  - TOOTH DISORDER [None]
  - TOOTH EXTRACTION [None]
